FAERS Safety Report 7162334-X (Version None)
Quarter: 2010Q4

REPORT INFORMATION
  Report Type: 
  Country: None (occurrence: None)
  Receive Date: 20101215
  Receipt Date: 20091013
  Transmission Date: 20110411
  Serious: Yes (Other)
  Sender: FDA-Public Use
  Company Number: DE-PFIZER INC-2009275519

PATIENT
  Age: 75 Year

DRUGS (2)
  1. LYRICA [Suspect]
     Indication: PARAESTHESIA
     Dosage: 100 MG, 2X/DAY
     Route: 048
     Dates: start: 20090828
  2. LYRICA [Suspect]
     Indication: MUSCLE SPASMS

REACTIONS (3)
  - ABDOMINAL PAIN LOWER [None]
  - ADHESION [None]
  - PHANTOM PAIN [None]
